FAERS Safety Report 7781666-5 (Version None)
Quarter: 2011Q3

REPORT INFORMATION
  Report Type: 
  Country: None (occurrence: None)
  Receive Date: 20110927
  Receipt Date: 20110522
  Transmission Date: 20111222
  Serious: No
  Sender: FDA-Public Use
  Company Number: US-BAYER-2011-044965

PATIENT

DRUGS (3)
  1. METFORMIN HCL [Interacting]
     Indication: DIABETES MELLITUS
  2. ACETYLSALICYLIC ACID SRT [Interacting]
     Indication: PROPHYLAXIS
     Route: 048
  3. ALEVE (CAPLET) [Suspect]
     Indication: ANALGESIC THERAPY
     Route: 048

REACTIONS (3)
  - OVERDOSE [None]
  - DRUG INTERACTION [None]
  - RENAL IMPAIRMENT [None]
